FAERS Safety Report 12710542 (Version 1)
Quarter: 2016Q3

REPORT INFORMATION
  Report Type: Spontaneous
  Country: JP (occurrence: JP)
  Receive Date: 20160902
  Receipt Date: 20160902
  Transmission Date: 20161109
  Serious: No
  Sender: FDA-Public Use
  Company Number: JP-LUPIN PHARMACEUTICALS INC.-2016-03089

PATIENT
  Sex: Male

DRUGS (2)
  1. CARDENALINE [Concomitant]
     Indication: HYPERTENSION
     Route: 048
     Dates: start: 20151117
  2. AMLODIPINE [Suspect]
     Active Substance: AMLODIPINE BESYLATE
     Indication: HYPERTENSION
     Route: 048
     Dates: start: 20160204, end: 20160204

REACTIONS (3)
  - Headache [Recovered/Resolved]
  - Hot flush [Recovered/Resolved]
  - Ocular hyperaemia [Recovered/Resolved]

NARRATIVE: CASE EVENT DATE: 20160204
